FAERS Safety Report 4875115-4 (Version None)
Quarter: 2006Q1

REPORT INFORMATION
  Report Type: 
  Country: None (occurrence: None)
  Receive Date: 20060109
  Receipt Date: 20060103
  Transmission Date: 20060701
  Serious: Yes (Death, Life-Threatening)
  Sender: FDA-Public Use
  Company Number: FR-GLAXOSMITHKLINE-B0405709A

PATIENT
  Age: 84 Year
  Sex: Male

DRUGS (2)
  1. AUGMENTIN '125' [Suspect]
     Dosage: 3G PER DAY
     Route: 042
     Dates: start: 20051106, end: 20051114
  2. ERYTHROCINE [Suspect]
     Dosage: 2G PER DAY
     Route: 042
     Dates: start: 20051106, end: 20051114

REACTIONS (3)
  - GRANULOCYTES MATURATION ARREST [None]
  - HISTIOCYTOSIS HAEMATOPHAGIC [None]
  - NEUTROPENIA [None]
